FAERS Safety Report 7970650-4 (Version None)
Quarter: 2011Q4

REPORT INFORMATION
  Report Type: 
  Country: None (occurrence: None)
  Receive Date: 20111212
  Receipt Date: 20111130
  Transmission Date: 20120403
  Serious: Yes (Other)
  Sender: FDA-Public Use
  Company Number: US-DX529-2011DX000053

PATIENT
  Age: 39 Year
  Sex: Female
  Weight: 86.18 kg

DRUGS (1)
  1. KALBITOR [Suspect]
     Indication: HEREDITARY ANGIOEDEMA
     Route: 058
     Dates: start: 20110916, end: 20110916

REACTIONS (4)
  - HEART RATE INCREASED [None]
  - ERYTHEMA [None]
  - HYPERSENSITIVITY [None]
  - BLOOD PRESSURE DECREASED [None]
